FAERS Safety Report 4506887-6 (Version None)
Quarter: 2004Q4

REPORT INFORMATION
  Report Type: 
  Country: None (occurrence: None)
  Receive Date: 20041117
  Receipt Date: 20041105
  Transmission Date: 20050328
  Serious: Yes (Life-Threatening)
  Sender: FDA-Public Use
  Company Number: 2004078674

PATIENT
  Age: 58 Year
  Sex: Male
  Weight: 101 kg

DRUGS (12)
  1. SORTIS (ATORVASTATIN) [Suspect]
     Indication: ARTERIAL OCCLUSIVE DISEASE
     Dosage: 20 MG (20 MG, 1 IN 1 D), ORAL
     Route: 048
  2. SORTIS (ATORVASTATIN) [Suspect]
     Indication: CORONARY ARTERY DISEASE
     Dosage: 20 MG (20 MG, 1 IN 1 D), ORAL
     Route: 048
  3. ACETYLSALICYLIC ACID SRT [Concomitant]
  4. PENTOXIFYLLINE [Concomitant]
  5. DOXAZOSIN MESYLATE [Concomitant]
  6. DUOVENT (FENOTEROL HYDROBROMIDE, IPRATROPIUM BROMIDE) [Concomitant]
  7. DICLOFENAC SODIUM [Concomitant]
  8. ACETYLCYSTEINE [Concomitant]
  9. ZOPICLONE (ZOPICLONE) [Concomitant]
  10. ALLOPURINOL [Concomitant]
  11. FORMOTEROL FUMARATE (FORMOTEROL FUMARATE) [Concomitant]
  12. ALL OTHER THERAPEUTIC PRODUCTS (ALL OTHER THERAPEUTIC PRODUCTS) [Concomitant]

REACTIONS (2)
  - DRUG INEFFECTIVE [None]
  - POLYMYOSITIS [None]
